FAERS Safety Report 19306956 (Version 4)
Quarter: 2021Q3

REPORT INFORMATION
  Report Type: Report from Study
  Country: US (occurrence: US)
  Receive Date: 20210526
  Receipt Date: 20210921
  Transmission Date: 20211014
  Serious: Yes (Other)
  Sender: FDA-Public Use
  Company Number: NVSC2021US116974

PATIENT
  Age: 47 Year
  Sex: Female

DRUGS (2)
  1. KESIMPTA [Suspect]
     Active Substance: OFATUMUMAB
     Dosage: UNK
     Route: 065
  2. KESIMPTA [Suspect]
     Active Substance: OFATUMUMAB
     Indication: MULTIPLE SCLEROSIS
     Dosage: 20 MG
     Route: 065
     Dates: start: 20210519

REACTIONS (18)
  - Cough [Unknown]
  - Balance disorder [Unknown]
  - Muscle spasms [Unknown]
  - Inappropriate schedule of product administration [Unknown]
  - Arthralgia [Unknown]
  - Back pain [Unknown]
  - Pain [Unknown]
  - Tremor [Unknown]
  - Dizziness [Unknown]
  - Rhinorrhoea [Unknown]
  - Chills [Unknown]
  - Asthenia [Unknown]
  - Myalgia [Unknown]
  - Gait disturbance [Recovered/Resolved]
  - Contusion [Unknown]
  - Headache [Unknown]
  - Multiple sclerosis relapse [Unknown]
  - Joint stiffness [Unknown]

NARRATIVE: CASE EVENT DATE: 20210520
